FAERS Safety Report 6717369-5 (Version None)
Quarter: 2010Q2

REPORT INFORMATION
  Report Type: 
  Country: None (occurrence: None)
  Receive Date: 20100505
  Receipt Date: 20100421
  Transmission Date: 20101027
  Serious: Yes (Other)
  Sender: FDA-Public Use
  Company Number: 7002227

PATIENT
  Age: 50 Year
  Sex: Female

DRUGS (3)
  1. REBIF [Suspect]
     Indication: MULTIPLE SCLEROSIS
     Dosage: 44 MCG, NOT REPORTED, SUBCUTANEOUS; 22 MCG, 3 IN 1 WK, SUBCUTANEOUS
     Route: 058
     Dates: start: 20091207, end: 20100201
  2. REBIF [Suspect]
     Indication: MULTIPLE SCLEROSIS
     Dosage: 44 MCG, NOT REPORTED, SUBCUTANEOUS; 22 MCG, 3 IN 1 WK, SUBCUTANEOUS
     Route: 058
     Dates: start: 20100201
  3. DEPRESSION MEDICATION   (ANTIDE-PRESSANTS) [Concomitant]

REACTIONS (10)
  - BACK PAIN [None]
  - CONSTIPATION [None]
  - FATIGUE [None]
  - GLAUCOMA [None]
  - INTERVERTEBRAL DISC PROTRUSION [None]
  - MICTURITION URGENCY [None]
  - MUSCLE SPASMS [None]
  - PAIN IN EXTREMITY [None]
  - POLLAKIURIA [None]
  - VISUAL IMPAIRMENT [None]
